FAERS Safety Report 13519986 (Version 2)
Quarter: 2017Q3

REPORT INFORMATION
  Report Type: Spontaneous
  Country: BE (occurrence: BE)
  Receive Date: 20170506
  Receipt Date: 20170704
  Transmission Date: 20171127
  Serious: Yes (Other)
  Sender: FDA-Public Use
  Company Number: BE-BRISTOL-MYERS SQUIBB COMPANY-BMS-2017-037504

PATIENT
  Age: 39 Year
  Sex: Female

DRUGS (5)
  1. OPDIVO [Suspect]
     Active Substance: NIVOLUMAB
     Indication: NON-SMALL CELL LUNG CANCER
     Dosage: 180 MG, Q2WK
     Route: 042
     Dates: start: 20170427
  2. METHYLPREDNISOLONE. [Concomitant]
     Active Substance: METHYLPREDNISOLONE
     Indication: METASTASES TO CENTRAL NERVOUS SYSTEM
     Dosage: 4 MG, BID
     Route: 048
     Dates: start: 20170402
  3. OXYCODONE [Concomitant]
     Active Substance: OXYCODONE
     Indication: PAIN
     Dosage: 5 MG, BID
     Route: 048
     Dates: start: 20170201
  4. PARACETAMOL [Concomitant]
     Active Substance: ACETAMINOPHEN
     Indication: PAIN
     Dosage: 1 G, TID
     Route: 048
     Dates: start: 20170201
  5. DEPAKINE                           /00228501/ [Concomitant]
     Active Substance: VALPROIC ACID
     Indication: METASTASES TO CENTRAL NERVOUS SYSTEM
     Dosage: 500 MG, BID
     Route: 048
     Dates: start: 20170402

REACTIONS (1)
  - Mastitis [Unknown]

NARRATIVE: CASE EVENT DATE: 20170518
